FAERS Safety Report 5088906-4 (Version None)
Quarter: 2006Q3

REPORT INFORMATION
  Report Type: 
  Country: None (occurrence: None)
  Receive Date: 20060825
  Receipt Date: 20060614
  Transmission Date: 20061208
  Serious: Yes (Death, Hospitalization)
  Sender: FDA-Public Use
  Company Number: CM-MERCK-0606USA02436

PATIENT
  Age: 14 Year
  Sex: Female

DRUGS (8)
  1. STROMECTOL [Suspect]
     Route: 048
     Dates: start: 20060504, end: 20060504
  2. DECADRON [Suspect]
     Route: 048
     Dates: start: 20060519
  3. ASCORBIC ACID [Concomitant]
     Route: 065
     Dates: start: 20060519
  4. PENICILLIN G [Concomitant]
     Route: 030
     Dates: start: 20060519, end: 20060523
  5. CHLORPHENIRAMINE MALEATE [Concomitant]
     Route: 048
     Dates: start: 20060519
  6. DECADRON [Concomitant]
     Route: 065
  7. CELESTENE [Concomitant]
     Route: 065
     Dates: start: 20060501, end: 20060523
  8. VITAMIN B (UNSPECIFIED) [Concomitant]
     Route: 065

REACTIONS (5)
  - KLEBSIELLA SEPSIS [None]
  - PRURITUS [None]
  - RASH [None]
  - TOXIC EPIDERMAL NECROLYSIS [None]
  - TOXIC SKIN ERUPTION [None]
